FAERS Safety Report 16437477 (Version 3)
Quarter: 2019Q4

REPORT INFORMATION
  Report Type: Spontaneous
  Country: JP (occurrence: JP)
  Receive Date: 20190615
  Receipt Date: 20191018
  Transmission Date: 20200122
  Serious: Yes (Life-Threatening)
  Sender: FDA-Public Use
  Company Number: JP-ROCHE-2336072

PATIENT
  Age: 55 Year
  Sex: Male

DRUGS (4)
  1. MAOTO [Concomitant]
     Active Substance: HERBALS
     Indication: INFLUENZA
     Route: 048
     Dates: start: 20181226
  2. CALONAL [Concomitant]
     Active Substance: ACETAMINOPHEN
     Indication: PYREXIA
     Route: 048
     Dates: start: 20181226
  3. XOFLUZA [Suspect]
     Active Substance: BALOXAVIR MARBOXIL
     Indication: INFLUENZA
     Route: 048
     Dates: start: 20181226, end: 20181226
  4. HUSCODE [Concomitant]
     Active Substance: CHLORPHENIRAMINE MALEATE\DIHYDROCODEINE PHOSPHATE\METHYLEPHEDRINE HYDROCHLORIDE, DL-
     Indication: COUGH
     Route: 048
     Dates: start: 20181226

REACTIONS (1)
  - Interstitial lung disease [Recovered/Resolved]

NARRATIVE: CASE EVENT DATE: 20181228
